FAERS Safety Report 20518051 (Version 3)
Quarter: 2024Q1

REPORT INFORMATION
  Report Type: Report from Study
  Country: MX (occurrence: MX)
  Receive Date: 20220225
  Receipt Date: 20240102
  Transmission Date: 20240409
  Serious: Yes (Other)
  Sender: FDA-Public Use
  Company Number: MX-NOVARTISPH-NVSC2022MX042931

PATIENT
  Age: 56 Year
  Sex: Female
  Weight: 73 kg

DRUGS (9)
  1. COSENTYX [Suspect]
     Active Substance: SECUKINUMAB
     Indication: Ankylosing spondylitis
     Dosage: 1 DOSAGE FORM, QMO (2 YEARS AGO)
     Route: 058
     Dates: start: 2019, end: 20211221
  2. COSENTYX [Suspect]
     Active Substance: SECUKINUMAB
     Dosage: 1 DOSAGE FORM, UNKNOWN
     Route: 058
     Dates: start: 20220221
  3. METHOTREXATE [Concomitant]
     Active Substance: METHOTREXATE
     Indication: Ankylosing spondylitis
     Dosage: 3 DOSAGE FORM, QW (3 (2.5MG) 10 YEARS AGO)
     Route: 048
  4. BRISTAFLAM [Concomitant]
     Indication: Ankylosing spondylitis
     Dosage: 1 DOSAGE FORM, Q8H IF NECESSARY (STARTED 5 YEARS AGO)
     Route: 048
  5. VITAMIN D [Concomitant]
     Active Substance: VITAMIN D NOS
     Indication: Ankylosing spondylitis
     Dosage: 1 DOSAGE FORM, QD (4 YEARS AGO)
     Route: 048
  6. PREGABALIN [Concomitant]
     Active Substance: PREGABALIN
     Indication: Ankylosing spondylitis
     Dosage: 150 MG, QD AT NIGHT (STARTED 4 YEARS AGO)
     Route: 048
  7. LEVOTHYROXINE SODIUM [Concomitant]
     Active Substance: LEVOTHYROXINE SODIUM
     Indication: Hypothyroidism
     Dosage: 1 DOSAGE FORM, QD (1(12MCG) STARTED 4 YEARS AGO
     Route: 048
  8. CALCIFEDIOL [Concomitant]
     Active Substance: CALCIFEDIOL
     Indication: Vitamin D deficiency
     Dosage: 1 DOSAGE FORM, QD
     Route: 048
     Dates: start: 202311
  9. NEXIUM [Concomitant]
     Active Substance: ESOMEPRAZOLE MAGNESIUM
     Indication: Abdominal discomfort
     Dosage: 1 DOSAGE FORM, PRN
     Route: 048
     Dates: start: 2019

REACTIONS (8)
  - Arthropathy [Unknown]
  - Spondylitis [Unknown]
  - Pain [Unknown]
  - Haemoglobin decreased [Unknown]
  - Fluid retention [Unknown]
  - Malaise [Unknown]
  - Fatigue [Unknown]
  - Sacral pain [Unknown]

NARRATIVE: CASE EVENT DATE: 20220110
